FAERS Safety Report 8117052-8 (Version None)
Quarter: 2012Q1

REPORT INFORMATION
  Report Type: 
  Country: None (occurrence: None)
  Receive Date: 20120206
  Receipt Date: 20120126
  Transmission Date: 20120608
  Serious: Yes (Death, Hospitalization, Other)
  Sender: FDA-Public Use
  Company Number: US-BAXTER-2012BH002598

PATIENT
  Sex: Female

DRUGS (1)
  1. DIANEAL [Suspect]
     Indication: PERITONEAL DIALYSIS
     Route: 033

REACTIONS (6)
  - DYSPNOEA [None]
  - HYPOTENSION [None]
  - CLOSTRIDIAL INFECTION [None]
  - ASTHENIA [None]
  - INFECTION [None]
  - LOBAR PNEUMONIA [None]
